FAERS Safety Report 22153561 (Version 1)
Quarter: 2023Q1

REPORT INFORMATION
  Report Type: Spontaneous
  Country: US (occurrence: None)
  Receive Date: 20230330
  Receipt Date: 20230330
  Transmission Date: 20230418
  Serious: No
  Sender: FDA-Public Use
  Company Number: 2023A052952

PATIENT
  Sex: Male
  Weight: 74.8 kg

DRUGS (1)
  1. SYMBICORT [Suspect]
     Active Substance: BUDESONIDE\FORMOTEROL FUMARATE DIHYDRATE
     Indication: Asthma
     Dosage: 80/4.5 MCG 2 PUFFS DAILY OR 2 PUFFS TWICE DAILY80UG/MG DAILY
     Route: 055

REACTIONS (9)
  - Dizziness [Recovered/Resolved]
  - Hypoacusis [Recovered/Resolved]
  - Palpitations [Recovered/Resolved]
  - Hyperhidrosis [Recovered/Resolved]
  - Dyspnoea [Recovering/Resolving]
  - Respiratory disorder [Recovering/Resolving]
  - Cough [Recovering/Resolving]
  - Product use issue [Unknown]
  - Product dose omission issue [Unknown]
